FAERS Safety Report 7216276-1 (Version None)
Quarter: 2011Q1

REPORT INFORMATION
  Report Type: 
  Country: None (occurrence: None)
  Receive Date: 20110107
  Receipt Date: 20101217
  Transmission Date: 20110831
  Serious: No
  Sender: FDA-Public Use
  Company Number: US-B.I. PHARMACEUTICALS,INC./RIDGEFIELD-2010-BP-15098BP

PATIENT
  Sex: Female

DRUGS (11)
  1. MELOXICAM [Concomitant]
     Indication: ARTHRALGIA
     Dosage: 15 MG
     Route: 048
  2. METFORMIN HCL [Suspect]
     Indication: DIABETES MELLITUS
     Dosage: 2000 MG
     Route: 048
  3. RISPERADONE [Concomitant]
     Indication: NERVE INJURY
     Dosage: 2 MG
     Route: 048
  4. PRADAXA [Suspect]
     Dosage: 300 MG
     Route: 048
     Dates: start: 20101217
  5. NAMENDA [Concomitant]
     Indication: MEMORY IMPAIRMENT
     Dosage: 10 MG
     Route: 048
  6. CLOMIPRAMINE HYDROCHLORIDE [Concomitant]
     Indication: DEPRESSION
  7. PRADAXA [Suspect]
     Indication: ATRIAL FIBRILLATION
     Dosage: 300 MG
     Route: 048
     Dates: start: 20101203, end: 20101203
  8. VYTORIN [Suspect]
     Indication: BLOOD CHOLESTEROL INCREASED
     Dosage: 30 MG
     Route: 048
  9. LEVOTHYROXINE SODIUM [Concomitant]
     Indication: HYPOTHYROIDISM
     Route: 048
  10. ONGLYZA [Concomitant]
     Indication: DIABETES MELLITUS
     Dosage: 5 MG
     Route: 048
  11. CLOMIPRAMINE HYDROCHLORIDE [Concomitant]
     Indication: NERVE INJURY
     Dosage: 75 MG
     Route: 048

REACTIONS (2)
  - HALLUCINATION [None]
  - TONGUE DISORDER [None]
